FAERS Safety Report 6672030-0 (Version None)
Quarter: 2010Q2

REPORT INFORMATION
  Report Type: 
  Country: None (occurrence: None)
  Receive Date: 20100406
  Receipt Date: 20100317
  Transmission Date: 20101027
  Serious: No
  Sender: FDA-Public Use
  Company Number: JP-GUERBET-20100008

PATIENT
  Age: 2 Year
  Sex: Female

DRUGS (1)
  1. HEXABRIX [Suspect]
     Indication: CARDIOVASCULAR EVALUATION
     Dosage: UNSPECIFIED INTERVAL

REACTIONS (7)
  - FACE OEDEMA [None]
  - HYPOTENSION [None]
  - HYPOXIA [None]
  - LATEX ALLERGY [None]
  - RASH MACULO-PAPULAR [None]
  - RESPIRATORY DEPRESSION [None]
  - USE OF ACCESSORY RESPIRATORY MUSCLES [None]
